FAERS Safety Report 15854320 (Version 1)
Quarter: 2019Q1

REPORT INFORMATION
  Report Type: Spontaneous
  Country: FR (occurrence: FR)
  Receive Date: 20190122
  Receipt Date: 20190122
  Transmission Date: 20190417
  Serious: Yes (Other)
  Sender: FDA-Public Use
  Company Number: FR-JNJFOC-20190123450

PATIENT
  Age: 34 Year
  Sex: Male
  Weight: 92 kg

DRUGS (1)
  1. EPITOMAX [Suspect]
     Active Substance: TOPIRAMATE
     Indication: NEURALGIA
     Route: 048
     Dates: start: 20171115, end: 20171122

REACTIONS (3)
  - Product use in unapproved indication [Unknown]
  - Migraine [Not Recovered/Not Resolved]
  - Off label use [Unknown]

NARRATIVE: CASE EVENT DATE: 20171115
